FAERS Safety Report 16835204 (Version 1)
Quarter: 2019Q3

REPORT INFORMATION
  Report Type: Spontaneous
  Country: CA (occurrence: CA)
  Receive Date: 20190920
  Receipt Date: 20190920
  Transmission Date: 20191005
  Serious: Yes (Life-Threatening, Hospitalization)
  Sender: FDA-Public Use
  Company Number: CA-ABBVIE-19K-028-2932102-00

PATIENT
  Age: 50 Year
  Sex: Female
  Weight: 63.56 kg

DRUGS (1)
  1. LUPRON DEPOT [Suspect]
     Active Substance: LEUPROLIDE ACETATE
     Indication: VAGINAL HAEMORRHAGE
     Dosage: SUSTAINED RELEASED.
     Route: 030

REACTIONS (5)
  - Depressed mood [Recovered/Resolved]
  - Horner^s syndrome [Recovered/Resolved]
  - Cerebrovascular accident [Recovered/Resolved]
  - Migraine [Recovered/Resolved]
  - Renal infarct [Recovered/Resolved]
